FAERS Safety Report 8355322-9 (Version None)
Quarter: 2012Q2

REPORT INFORMATION
  Report Type: 
  Country: None (occurrence: None)
  Receive Date: 20120511
  Receipt Date: 20110328
  Transmission Date: 20120825
  Serious: No
  Sender: FDA-Public Use
  Company Number: US-TEVA-2011001469

PATIENT
  Sex: Female
  Weight: 72.64 kg

DRUGS (8)
  1. EFFEXOR XR [Concomitant]
     Dates: start: 20090101
  2. NUVIGIL [Suspect]
     Indication: HYPERSOMNIA
     Dosage: 250 MILLIGRAM;
     Route: 048
     Dates: start: 20100901
  3. PROTONIC [Concomitant]
     Dates: start: 20100501
  4. TOVIAZ [Concomitant]
     Dates: start: 20090101
  5. ASPIRIN [Concomitant]
     Dates: start: 20080101
  6. HYDROCHLOROTHIAZIDE [Concomitant]
     Dates: start: 20010101
  7. RAMIPRIL [Concomitant]
     Dates: start: 20090101
  8. VITAMIN TAB [Concomitant]

REACTIONS (1)
  - DRUG INEFFECTIVE FOR UNAPPROVED INDICATION [None]
